FAERS Safety Report 8573213 (Version 2)
Quarter: 2013Q2

REPORT INFORMATION
  Report Type: Spontaneous
  Country: US (occurrence: US)
  Receive Date: 20120522
  Receipt Date: 20130517
  Transmission Date: 20140414
  Serious: Yes (Hospitalization)
  Sender: FDA-Public Use
  Company Number: US-BAYER-2012-049554

PATIENT
  Age: 35 Year
  Sex: Female
  Weight: 59 kg

DRUGS (5)
  1. BEYAZ [Suspect]
     Dosage: UNK
     Dates: start: 201106, end: 201109
  2. YASMIN [Suspect]
     Indication: MENSTRUATION IRREGULAR
     Dosage: UNK
  3. TOPIRAMATE [Concomitant]
     Dosage: 100 MG, UNK
     Dates: start: 20071117, end: 20110707
  4. MULTIVITAMIN [Concomitant]
     Dosage: UNK
     Dates: start: 20110921
  5. VITAMIN D [Concomitant]
     Dosage: UNK
     Dates: start: 20110921

REACTIONS (4)
  - Deep vein thrombosis [None]
  - Injury [None]
  - Pain [None]
  - Emotional distress [None]
